FAERS Safety Report 11123721 (Version 1)
Quarter: 2015Q2

REPORT INFORMATION
  Report Type: Spontaneous
  Country: US (occurrence: US)
  Receive Date: 20150519
  Receipt Date: 20150519
  Transmission Date: 20150821
  Serious: No
  Sender: FDA-Public Use
  Company Number: US-009507513-1505USA006649

PATIENT
  Age: 67 Year
  Sex: Female

DRUGS (5)
  1. CISPLATIN. [Concomitant]
     Active Substance: CISPLATIN
  2. VINBLASTINE SULFATE. [Concomitant]
     Active Substance: VINBLASTINE SULFATE
  3. TEMODAR [Suspect]
     Active Substance: TEMOZOLOMIDE
     Indication: METASTATIC MALIGNANT MELANOMA
     Dosage: UNK UNK, QD
  4. PREDNISONE. [Concomitant]
     Active Substance: PREDNISONE
  5. METHOTREXATE [Concomitant]
     Active Substance: METHOTREXATE

REACTIONS (1)
  - Drug ineffective [Unknown]
